FAERS Safety Report 6731830-9 (Version None)
Quarter: 2010Q2

REPORT INFORMATION
  Report Type: 
  Country: None (occurrence: None)
  Receive Date: 20100519
  Receipt Date: 20100510
  Transmission Date: 20101027
  Serious: Yes (Hospitalization, Other)
  Sender: FDA-Public Use
  Company Number: PHHY2010GB17953

PATIENT
  Sex: Male

DRUGS (3)
  1. CLOZARIL [Suspect]
     Indication: SCHIZOPHRENIA
     Dosage: UNK
     Dates: start: 20100305
  2. ANTIEPILEPTICS [Concomitant]
  3. RISPERIDONE [Concomitant]

REACTIONS (8)
  - ANAEMIA [None]
  - APPETITE DISORDER [None]
  - ASTHENIA [None]
  - DIZZINESS [None]
  - EXTRAPYRAMIDAL DISORDER [None]
  - HYPONATRAEMIA [None]
  - MALAISE [None]
  - PANCREATITIS [None]
